FAERS Safety Report 18215850 (Version 1)
Quarter: 2020Q3

REPORT INFORMATION
  Report Type: Spontaneous
  Country: CA (occurrence: CA)
  Receive Date: 20200831
  Receipt Date: 20200831
  Transmission Date: 20201103
  Serious: Yes (Other)
  Sender: FDA-Public Use
  Company Number: CA-ROCHE-2666793

PATIENT
  Age: 53 Year
  Sex: Female
  Weight: 102 kg

DRUGS (5)
  1. LAPELGA [Concomitant]
     Active Substance: PEGFILGRASTIM
     Dosage: 2 DAYS AFTER EACH CHEMOTHERAPY
  2. CETIRIZINE [Concomitant]
     Active Substance: CETIRIZINE HYDROCHLORIDE
     Indication: RHINORRHOEA
  3. DOCETAXEL. [Suspect]
     Active Substance: DOCETAXEL
     Indication: TRIPLE POSITIVE BREAST CANCER
     Route: 042
     Dates: start: 20200316, end: 20200708
  4. HERCEPTIN [Suspect]
     Active Substance: TRASTUZUMAB
     Indication: TRIPLE POSITIVE BREAST CANCER
     Route: 041
     Dates: start: 20200316
  5. CARBOPLATIN. [Suspect]
     Active Substance: CARBOPLATIN
     Indication: TRIPLE POSITIVE BREAST CANCER
     Route: 042
     Dates: start: 20200316, end: 20200708

REACTIONS (12)
  - Fall [Recovered/Resolved]
  - Weight fluctuation [Unknown]
  - Peripheral swelling [Recovering/Resolving]
  - Dyspnoea [Not Recovered/Not Resolved]
  - Blood creatinine increased [Recovered/Resolved]
  - Blood glucose increased [Unknown]
  - Seasonal allergy [Not Recovered/Not Resolved]
  - Heart rate increased [Not Recovered/Not Resolved]
  - White blood cell count increased [Unknown]
  - Thrombosis [Recovered/Resolved]
  - Diarrhoea [Recovering/Resolving]
  - Contusion [Recovering/Resolving]

NARRATIVE: CASE EVENT DATE: 20200513
